FAERS Safety Report 8338821-5 (Version None)
Quarter: 2012Q2

REPORT INFORMATION
  Report Type: 
  Country: None (occurrence: None)
  Receive Date: 20120504
  Receipt Date: 20120426
  Transmission Date: 20120825
  Serious: Yes (Hospitalization, Disabling)
  Sender: FDA-Public Use
  Company Number: US-MERCK-1112USA00797

PATIENT
  Age: 59 Year
  Sex: Female

DRUGS (10)
  1. LEVOTHYROXINE SODIUM [Concomitant]
     Indication: HYPOTHYROIDISM
     Route: 065
  2. FOSAMAX [Suspect]
     Indication: OSTEOPOROSIS
     Route: 048
     Dates: start: 19980101, end: 20080101
  3. FOSAMAX [Suspect]
     Route: 048
     Dates: start: 20080201, end: 20080101
  4. FOSAMAX [Suspect]
     Indication: OSTEOPOROSIS PROPHYLAXIS
     Route: 048
     Dates: start: 19980101, end: 20080101
  5. FOSAMAX [Suspect]
     Route: 048
     Dates: start: 20080501
  6. ALENDRONATE SODIUM [Suspect]
     Indication: OSTEOPOROSIS
     Route: 065
     Dates: start: 20080201, end: 20080101
  7. VITAMINS (UNSPECIFIED) [Concomitant]
     Route: 065
  8. FOSAMAX [Suspect]
     Route: 048
     Dates: start: 20080501
  9. FOSAMAX [Suspect]
     Route: 048
     Dates: start: 20080201, end: 20080101
  10. ALENDRONATE SODIUM [Suspect]
     Indication: OSTEOPOROSIS PROPHYLAXIS
     Route: 065
     Dates: start: 20080201, end: 20080101

REACTIONS (8)
  - THYROID CYST [None]
  - FEMUR FRACTURE [None]
  - OSTEOARTHRITIS [None]
  - SPINAL OSTEOARTHRITIS [None]
  - FALL [None]
  - OSTEOMALACIA [None]
  - HAEMORRHAGIC ANAEMIA [None]
  - LOW TURNOVER OSTEOPATHY [None]
